FAERS Safety Report 6384265-5 (Version None)
Quarter: 2009Q4

REPORT INFORMATION
  Report Type: 
  Country: None (occurrence: None)
  Receive Date: 20091001
  Receipt Date: 20090921
  Transmission Date: 20100525
  Serious: Yes (Other)
  Sender: FDA-Public Use
  Company Number: US-PFIZER INC-2009272689

PATIENT
  Sex: Male
  Weight: 72.562 kg

DRUGS (23)
  1. NORVASC [Suspect]
     Dosage: 10 MG, 1X/DAY
     Route: 048
  2. ACETYLSALICYLIC ACID [Concomitant]
     Dosage: UNK
  3. ATIVAN [Concomitant]
     Dosage: UNK
  4. PROMETHAZINE [Concomitant]
     Dosage: UNK
  5. PERCOCET [Concomitant]
     Dosage: UNK
  6. NOVOLOG [Concomitant]
     Dosage: UNK
  7. CINNAMON [Concomitant]
     Dosage: UNK
  8. VITAMINS [Concomitant]
     Dosage: UNK
  9. VITAMIN B6 [Concomitant]
     Dosage: UNK
  10. VITAMIN B1 TAB [Concomitant]
     Dosage: UNK
  11. BENADRYL [Concomitant]
     Dosage: UNK
  12. ZOCOR [Concomitant]
     Dosage: UNK
  13. AMBIEN [Concomitant]
     Dosage: UNK
  14. LEVOTHYROXINE [Concomitant]
     Dosage: UNK
  15. LISINOPRIL [Concomitant]
     Dosage: UNK
  16. METOPROLOL [Concomitant]
     Dosage: UNK
  17. PANTOPRAZOLE [Concomitant]
     Dosage: UNK
  18. RISPERIDONE [Concomitant]
     Dosage: UNK
  19. PHOSLO [Concomitant]
     Dosage: UNK
  20. CYMBALTA [Concomitant]
     Dosage: UNK
  21. NEURONTIN [Concomitant]
     Dosage: UNK
  22. LANTUS [Concomitant]
     Dosage: UNK
  23. DEPAKOTE [Concomitant]
     Dosage: UNK

REACTIONS (1)
  - THROMBOSIS [None]
